FAERS Safety Report 8904157 (Version 1)
Quarter: 2012Q4

REPORT INFORMATION
  Report Type: 
  Country: US (occurrence: US)
  Receive Date: 20121112
  Receipt Date: 20121112
  Transmission Date: 20130627
  Serious: No
  Sender: FDA-Public Use
  Company Number: US-PFIZER INC-2012279850

PATIENT
  Age: 60 Year
  Sex: Male
  Weight: 80.27 kg

DRUGS (2)
  1. VIAGRA [Suspect]
     Indication: ERECTILE DYSFUNCTION
     Dosage: 100 mg, as needed
  2. ASPIRIN [Concomitant]
     Indication: DISORDER CIRCULATORY SYSTEM
     Dosage: 81 mg, daily

REACTIONS (2)
  - Drug effect decreased [Unknown]
  - Drug tolerance [Unknown]
